FAERS Safety Report 14973930 (Version 1)
Quarter: 2018Q2

REPORT INFORMATION
  Report Type: Spontaneous
  Country: US (occurrence: US)
  Receive Date: 20180605
  Receipt Date: 20180605
  Transmission Date: 20180711
  Serious: No
  Sender: FDA-Public Use
  Company Number: US-SA-2018SA107048

PATIENT
  Age: 28 Year
  Sex: Female
  Weight: 115 kg

DRUGS (2)
  1. DUPIXENT [Suspect]
     Active Substance: DUPILUMAB
     Indication: DERMATITIS ATOPIC
     Dosage: UNK UNK,UNK
     Route: 058
     Dates: start: 201802, end: 201804
  2. CLARITEX [Concomitant]
     Indication: SEASONAL ALLERGY
     Dosage: 10 MG, PRN

REACTIONS (3)
  - Hypoaesthesia [Recovered/Resolved]
  - Cyanosis [Not Recovered/Not Resolved]
  - Feeling cold [Not Recovered/Not Resolved]

NARRATIVE: CASE EVENT DATE: 2018
